FAERS Safety Report 5235848-7 (Version None)
Quarter: 2007Q1

REPORT INFORMATION
  Report Type: 
  Country: None (occurrence: None)
  Receive Date: 20061208
  Receipt Date: 20060801
  Transmission Date: 20070707
  Serious: Yes (Other)
  Sender: FDA-Public Use
  Company Number: 2006UW13259

PATIENT
  Age: 69 Year
  Sex: Female
  Weight: 63.956 kg

DRUGS (9)
  1. CRESTOR [Suspect]
     Indication: BLOOD CHOLESTEROL INCREASED
     Dosage: 5 MG HS PO
     Route: 048
     Dates: start: 20060401
  2. FOSAMAX [Concomitant]
  3. HYZAAR [Concomitant]
  4. CLARITIN [Concomitant]
  5. PREMARIN [Concomitant]
  6. ASPIRIN [Concomitant]
  7. ACIPHEX [Concomitant]
  8. XANAX [Concomitant]
  9. CALCIUM [Concomitant]

REACTIONS (1)
  - RESTLESS LEGS SYNDROME [None]
